FAERS Safety Report 23585332 (Version 2)
Quarter: 2024Q2

REPORT INFORMATION
  Report Type: Report from Study
  Country: CA (occurrence: CA)
  Receive Date: 20240301
  Receipt Date: 20240401
  Transmission Date: 20240716
  Serious: Yes (Hospitalization, Other)
  Sender: FDA-Public Use
  Company Number: CA-ABBVIE-5655532

PATIENT
  Sex: Male

DRUGS (1)
  1. SKYRIZI [Suspect]
     Active Substance: RISANKIZUMAB-RZAA
     Indication: Psoriasis
     Route: 058
     Dates: start: 20230601

REACTIONS (8)
  - Carotid artery occlusion [Unknown]
  - Urinary tract infection [Unknown]
  - Nasopharyngitis [Unknown]
  - Gout [Unknown]
  - Hepatic failure [Unknown]
  - Renal failure [Unknown]
  - COVID-19 [Unknown]
  - Nail psoriasis [Unknown]

NARRATIVE: CASE EVENT DATE: 20240201
